FAERS Safety Report 10878914 (Version 1)
Quarter: 2015Q1

REPORT INFORMATION
  Report Type: Spontaneous
  Country: US (occurrence: HN)
  Receive Date: 20150302
  Receipt Date: 20150302
  Transmission Date: 20150721
  Serious: Yes (Death)
  Sender: FDA-Public Use
  Company Number: US-PFIZER INC-2015074958

PATIENT
  Age: 61 Year
  Sex: Female
  Weight: 92 kg

DRUGS (8)
  1. NORCO [Concomitant]
     Active Substance: ACETAMINOPHEN\HYDROCODONE BITARTRATE
     Dosage: ONE 10MG/325MG EVERY 4 HOURS AS NEEDED
  2. ELAVIL [Concomitant]
     Active Substance: AMITRIPTYLINE HYDROCHLORIDE
     Dosage: 100 MG NIGHTLY
  3. LYRICA [Suspect]
     Active Substance: PREGABALIN
     Indication: RADICULOPATHY
  4. PRISTIQ EXTENDED RELEASE [Suspect]
     Active Substance: DESVENLAFAXINE SUCCINATE
     Dosage: 100 MG, ALTERNATE DAY
     Dates: start: 201010
  5. TOPAMAX [Concomitant]
     Active Substance: TOPIRAMATE
     Dosage: 25MG IN MORNING AND AFTERNOON, 100MG AT NIGHT
  6. KLONOPIN [Concomitant]
     Active Substance: CLONAZEPAM
     Dosage: 4 MG, NIGHTLY AS NEEDED
     Route: 048
  7. LYRICA [Suspect]
     Active Substance: PREGABALIN
     Indication: EPILEPSY
     Dosage: 150 MG, 3X/DAY
     Dates: start: 2011
  8. PRISTIQ EXTENDED RELEASE [Suspect]
     Active Substance: DESVENLAFAXINE SUCCINATE
     Indication: DYSPHORIA
     Dosage: 50 MG, ALTERNATE DAY
     Dates: start: 201010

REACTIONS (1)
  - Myocardial infarction [Fatal]

NARRATIVE: CASE EVENT DATE: 201412
